FAERS Safety Report 4730293-2 (Version None)
Quarter: 2005Q3

REPORT INFORMATION
  Report Type: 
  Country: None (occurrence: None)
  Receive Date: 20050729
  Receipt Date: 20050713
  Transmission Date: 20060218
  Serious: Yes (Hospitalization)
  Sender: FDA-Public Use
  Company Number: 2005S1006084

PATIENT
  Age: 41 Year
  Sex: Female
  Weight: 56.6996 kg

DRUGS (8)
  1. FENTANYL [Suspect]
     Indication: PAIN
     Dosage: 25 MCG/HR; QOD; TDER
     Route: 062
     Dates: start: 20050321, end: 20050605
  2. FENTANYL TRANSDERMAL SYSTE (50 MCG/HR) [Suspect]
     Indication: PAIN
     Dosage: 50 MCG/HR; Q3D; TDER
     Route: 062
     Dates: start: 20050513, end: 20050605
  3. FLUTICASONE PROPIONATE [Concomitant]
  4. SALMETEROL XINAFOATE [Concomitant]
  5. GLATIRAMER ACETATE [Concomitant]
  6. MODAFINIL [Concomitant]
  7. FLUOXETINE [Concomitant]
  8. HYDROCHLORIDE [Concomitant]

REACTIONS (8)
  - CHILLS [None]
  - COLD SWEAT [None]
  - DRUG INEFFECTIVE [None]
  - DRUG WITHDRAWAL SYNDROME [None]
  - MUSCLE SPASMS [None]
  - PAIN [None]
  - PHARMACEUTICAL PRODUCT COMPLAINT [None]
  - PHOTOSENSITIVITY REACTION [None]
